FAERS Safety Report 8166999-5 (Version None)
Quarter: 2012Q1

REPORT INFORMATION
  Report Type: 
  Country: None (occurrence: None)
  Receive Date: 20120227
  Receipt Date: 20120220
  Transmission Date: 20120608
  Serious: Yes (Death, Hospitalization, Other)
  Sender: FDA-Public Use
  Company Number: GB-ABBOTT-11P-167-0836257-00

PATIENT
  Sex: Male

DRUGS (34)
  1. PREDNISOLONE [Concomitant]
     Indication: PRODUCT USED FOR UNKNOWN INDICATION
     Dates: end: 20110801
  2. SENNA [Concomitant]
     Indication: PRODUCT USED FOR UNKNOWN INDICATION
  3. MOVIPREP [Concomitant]
     Indication: PRODUCT USED FOR UNKNOWN INDICATION
     Dosage: MOVICOL-HALF SACHETS; LAXIDO
  4. LANSOPRAZOLE [Concomitant]
     Indication: PRODUCT USED FOR UNKNOWN INDICATION
  5. DOCUSATE SODIUM [Concomitant]
     Indication: PRODUCT USED FOR UNKNOWN INDICATION
     Dosage: LIQUID FORM DILUTE WITH EQUAL VOLUME OF WATER
  6. LEVOTHYROXINE SODIUM [Concomitant]
     Indication: PRODUCT USED FOR UNKNOWN INDICATION
  7. ORAMORPH SR [Concomitant]
     Indication: PRODUCT USED FOR UNKNOWN INDICATION
     Dosage: 10MG/5ML
  8. FLUDROCORTISONE ACETATE [Concomitant]
     Indication: PRODUCT USED FOR UNKNOWN INDICATION
     Dosage: DISPERSE IN 10MLS OF WATER
  9. LEVOMEPROMAZINE [Concomitant]
     Indication: PRODUCT USED FOR UNKNOWN INDICATION
  10. GLYCEROL 2.6% [Concomitant]
     Indication: PRODUCT USED FOR UNKNOWN INDICATION
     Dosage: 1 OR 2 EVERY 3 DAYS
  11. HUMIRA [Suspect]
     Indication: WEGENER'S GRANULOMATOSIS
     Route: 058
     Dates: start: 20080501, end: 20110701
  12. ALENDRONATE SODIUM [Concomitant]
     Indication: PRODUCT USED FOR UNKNOWN INDICATION
  13. ZOPICLONE [Concomitant]
     Indication: PRODUCT USED FOR UNKNOWN INDICATION
     Dosage: CRUSH
  14. HALOPERIDOL [Concomitant]
     Indication: PRODUCT USED FOR UNKNOWN INDICATION
  15. STRONTIUM RANELATE [Concomitant]
     Indication: PRODUCT USED FOR UNKNOWN INDICATION
     Dosage: SACHET DISOLVES IN WATER
  16. LIDOCAINE [Concomitant]
     Indication: PRODUCT USED FOR UNKNOWN INDICATION
     Dosage: ATCHES BOTH TO LEFT ARM REMOVE 12 HR LATER, SHORT TERM
  17. METHYLPREDNISOLONE [Concomitant]
     Indication: PRODUCT USED FOR UNKNOWN INDICATION
     Dosage: 3 DOSES
     Route: 042
  18. ANALGESIA [Concomitant]
     Indication: PRODUCT USED FOR UNKNOWN INDICATION
  19. ENOXAPARIN [Concomitant]
     Indication: PRODUCT USED FOR UNKNOWN INDICATION
     Dosage: 100MG (10,000 UNITS)/1ML SYRINGE
  20. ACETAMINOPHEN [Concomitant]
     Indication: PRODUCT USED FOR UNKNOWN INDICATION
     Dosage: 500MG SOLUBLE
  21. FENTANYL [Concomitant]
     Indication: PRODUCT USED FOR UNKNOWN INDICATION
     Dosage: ONE HUNDREDMICROGRAM PER HOUR, PATCH CHANGE EVERY 72 HRS
     Route: 062
  22. CALCIUM CARBONATE [Concomitant]
     Indication: PRODUCT USED FOR UNKNOWN INDICATION
  23. FORTIJUICE [Concomitant]
     Indication: PRODUCT USED FOR UNKNOWN INDICATION
  24. TRAMADOL HCL [Concomitant]
     Indication: PRODUCT USED FOR UNKNOWN INDICATION
     Dosage: 100MG DISPERSABLE
  25. TRIMIPRAMINE MALEATE [Concomitant]
     Indication: PRODUCT USED FOR UNKNOWN INDICATION
     Dosage: TABLETS DISPERSE IN WATER
  26. MERCAPTOPURINE [Concomitant]
     Indication: PRODUCT USED FOR UNKNOWN INDICATION
     Dates: start: 20080801, end: 20110609
  27. NYSTATIN [Concomitant]
     Indication: PRODUCT USED FOR UNKNOWN INDICATION
     Dosage: 100,000 UNITS/ML SUSPENSION
  28. PREDNISOLONE [Concomitant]
     Dosage: SOLUBLE 40MG OD FOR 3 DAYS DECREASING DOSAGE TO 10MG EOW THEN 10MG OD
  29. FLUDRACORTISONE [Concomitant]
     Indication: PRODUCT USED FOR UNKNOWN INDICATION
  30. LACTULOSE [Concomitant]
     Indication: PRODUCT USED FOR UNKNOWN INDICATION
     Dosage: MIX WITH 2-3 X VOLUME WITH WATER
  31. AMOXICILLIN AND CLAVULANATE POTASSIUM [Concomitant]
     Indication: PRODUCT USED FOR UNKNOWN INDICATION
     Dosage: SUSPENSION
  32. SIMVASTATIN [Concomitant]
     Indication: PRODUCT USED FOR UNKNOWN INDICATION
     Dosage: CRUSH DISPERSE IN 10MLS OF WATER
  33. CITALOPRAM HYDROBROMIDE [Concomitant]
     Indication: PRODUCT USED FOR UNKNOWN INDICATION
  34. MIRTAZAPINE [Concomitant]
     Indication: PRODUCT USED FOR UNKNOWN INDICATION
     Dosage: ORODISPERSIBLE

REACTIONS (21)
  - FACIAL PARESIS [None]
  - FALL [None]
  - APHASIA [None]
  - REFLEXES ABNORMAL [None]
  - ABNORMAL BEHAVIOUR [None]
  - MUSCULAR WEAKNESS [None]
  - OPTIC ATROPHY [None]
  - HEMIANOPIA HOMONYMOUS [None]
  - CEREBRAL ISCHAEMIA [None]
  - HERPES ZOSTER [None]
  - FEMORAL NECK FRACTURE [None]
  - CEREBROVASCULAR ACCIDENT [None]
  - DISORIENTATION [None]
  - GENERAL PHYSICAL HEALTH DETERIORATION [None]
  - OFF LABEL USE [None]
  - DYSARTHRIA [None]
  - HEMISENSORY NEGLECT [None]
  - MOTOR DYSFUNCTION [None]
  - OSMOTIC DEMYELINATION SYNDROME [None]
  - PROGRESSIVE MULTIFOCAL LEUKOENCEPHALOPATHY [None]
  - TENSION HEADACHE [None]
